FAERS Safety Report 6168446-1 (Version None)
Quarter: 2009Q2

REPORT INFORMATION
  Report Type: 
  Country: None (occurrence: None)
  Receive Date: 20090427
  Receipt Date: 20090417
  Transmission Date: 20091009
  Serious: Yes (Hospitalization)
  Sender: FDA-Public Use
  Company Number: A0753396A

PATIENT
  Age: 36 Year
  Sex: Male
  Weight: 113.6 kg

DRUGS (2)
  1. AVANDIA [Suspect]
     Indication: TYPE 2 DIABETES MELLITUS
     Dosage: 4MG TWICE PER DAY
     Route: 048
     Dates: start: 20000101
  2. AVANDAMET [Suspect]
     Indication: DIABETES MELLITUS
     Route: 048

REACTIONS (10)
  - ACUTE CORONARY SYNDROME [None]
  - ARRHYTHMIA [None]
  - ARTERIOSCLEROSIS [None]
  - ARTERIOVENOUS MALFORMATION [None]
  - BLOOD CHOLESTEROL ABNORMAL [None]
  - BLOOD TRIGLYCERIDES INCREASED [None]
  - FLUID RETENTION [None]
  - HEART INJURY [None]
  - HYPERTENSION [None]
  - MYOCARDIAL INFARCTION [None]
